FAERS Safety Report 8613268-2 (Version None)
Quarter: 2012Q3

REPORT INFORMATION
  Report Type: 
  Country: None (occurrence: None)
  Receive Date: 20120822
  Receipt Date: 20120803
  Transmission Date: 20120928
  Serious: Yes (Life-Threatening)
  Sender: FDA-Public Use
  Company Number: JP-009507513-1208JPN003887

PATIENT

DRUGS (8)
  1. ALFAROL [Concomitant]
     Dosage: 1 MCG DAILY
     Route: 048
  2. CIRCULETIN [Concomitant]
     Dosage: DIVIDED DOSE FREQUENCY U
     Route: 048
  3. GRANDAXIN [Concomitant]
     Dosage: DAILY DOSAGE UNKNOWN
     Route: 048
  4. PRAVASTATIN SODIUM [Concomitant]
     Dosage: DIVIDED DOSE FREQUENCY U
     Route: 048
  5. ADVAIR DISKUS 100/50 [Concomitant]
     Dosage: 250 MCG ONCE
     Route: 055
  6. AMLODIPINE BESYLATE [Concomitant]
     Dosage: DIVIDED DOSE FREQUENCY U
     Route: 048
  7. LOSARTAN POTASSIUM [Suspect]
     Indication: HYPERTENSION
     Dosage: 50 MG, ONCE
     Route: 048
     Dates: end: 20120731
  8. RABEPRAZOLE SODIUM [Concomitant]
     Dosage: DIVIDED DOSE FREQUENCY U
     Route: 048

REACTIONS (1)
  - HYPOGLYCAEMIA [None]
